FAERS Safety Report 24315785 (Version 1)
Quarter: 2024Q3

REPORT INFORMATION
  Report Type: Spontaneous
  Country: IT (occurrence: IT)
  Receive Date: 20240913
  Receipt Date: 20240913
  Transmission Date: 20241016
  Serious: Yes (Other)
  Sender: MYLAN
  Company Number: IT-MYLANLABS-2024M1082300

PATIENT
  Sex: Male

DRUGS (4)
  1. DELORAZEPAM [Suspect]
     Active Substance: DELORAZEPAM
     Indication: Insomnia
     Dosage: UNK
     Route: 065
  2. DEXMEDETOMIDINE [Suspect]
     Active Substance: DEXMEDETOMIDINE
     Indication: Insomnia
     Dosage: RECEIVED FOR 8 MONTHS AND STILL ONGOING, INTRANASAL
     Route: 065
  3. MELATONIN [Suspect]
     Active Substance: MELATONIN
     Indication: Insomnia
     Dosage: UNK
     Route: 065
  4. NIAPRAZINE [Suspect]
     Active Substance: NIAPRAZINE
     Indication: Insomnia
     Dosage: UNK
     Route: 065

REACTIONS (2)
  - Treatment failure [Unknown]
  - Off label use [Unknown]
